FAERS Safety Report 4619180-8 (Version None)
Quarter: 2005Q2

REPORT INFORMATION
  Report Type: 
  Country: None (occurrence: None)
  Receive Date: 20050321
  Receipt Date: 20040817
  Transmission Date: 20051028
  Serious: Yes (Other)
  Sender: FDA-Public Use
  Company Number: 2004-08-1070

PATIENT
  Age: 38 Year
  Sex: Male

DRUGS (1)
  1. PEG-INTRON [Suspect]
     Dosage: 4 DOSE(S) SUBCUTANEOUS
     Route: 058

REACTIONS (1)
  - COLITIS [None]
